FAERS Safety Report 7220695-7 (Version None)
Quarter: 2011Q1

REPORT INFORMATION
  Report Type: 
  Country: None (occurrence: None)
  Receive Date: 20110111
  Receipt Date: 20110106
  Transmission Date: 20110831
  Serious: Yes (Life-Threatening, Other)
  Sender: FDA-Public Use
  Company Number: GB-ELI_LILLY_AND_COMPANY-GB201009004104

PATIENT
  Sex: Female
  Weight: 125 kg

DRUGS (6)
  1. GLIMEPIRIDE [Concomitant]
     Dosage: 2 MG, UNK
     Route: 048
     Dates: start: 20100727
  2. BYETTA [Suspect]
     Indication: GLYCOSYLATED HAEMOGLOBIN INCREASED
     Dosage: 5 UG, UNK
  3. BYETTA [Suspect]
     Dosage: 10 UG, UNK
     Dates: start: 20100715
  4. BYETTA [Suspect]
     Dosage: 5 UG, UNK
  5. ESOMEPRAZOLE [Concomitant]
     Route: 048
  6. METFORMIN [Concomitant]
     Dosage: 1000 MG, 2/D
     Route: 048

REACTIONS (5)
  - INCORRECT DOSE ADMINISTERED [None]
  - HYPOGLYCAEMIA [None]
  - ABDOMINAL PAIN [None]
  - DIARRHOEA [None]
  - OFF LABEL USE [None]
